FAERS Safety Report 9796642 (Version 2)
Quarter: 2014Q1

REPORT INFORMATION
  Report Type: Spontaneous
  Country: TR (occurrence: TR)
  Receive Date: 20140103
  Receipt Date: 20140109
  Transmission Date: 20141002
  Serious: Yes (Hospitalization, Other)
  Sender: FDA-Public Use
  Company Number: TR-ABBVIE-14P-161-1185971-00

PATIENT
  Sex: Female
  Weight: 2.7 kg

DRUGS (2)
  1. VALPROIC ACID [Suspect]
     Indication: MATERNAL EXPOSURE TIMING UNSPECIFIED
     Route: 064
  2. LAMOTRIGINE [Interacting]
     Indication: MATERNAL EXPOSURE TIMING UNSPECIFIED
     Route: 064

REACTIONS (5)
  - Sepsis [Recovered/Resolved]
  - Foetal exposure during pregnancy [Unknown]
  - Drug interaction [Recovered/Resolved]
  - Hypotonia [Recovered/Resolved]
  - Feeding disorder of infancy or early childhood [Recovered/Resolved]
